FAERS Safety Report 15535433 (Version 1)
Quarter: 2018Q4

REPORT INFORMATION
  Report Type: Report from Study
  Country: CN (occurrence: CN)
  Receive Date: 20181022
  Receipt Date: 20181022
  Transmission Date: 20190205
  Serious: Yes (Death)
  Sender: FDA-Public Use
  Company Number: CN-ROCHE-2202641

PATIENT
  Age: 84 Year
  Sex: Male

DRUGS (1)
  1. ALTEPLASE. [Suspect]
     Active Substance: ALTEPLASE
     Indication: ISCHAEMIC STROKE
     Dosage: 10% OF THE TOTAL DOSE OF
     Route: 042

REACTIONS (4)
  - Gastrointestinal haemorrhage [Fatal]
  - Cardiac failure [Fatal]
  - Off label use [Unknown]
  - Intentional product use issue [Unknown]
